FAERS Safety Report 6029941-9 (Version None)
Quarter: 2009Q1

REPORT INFORMATION
  Report Type: 
  Country: None (occurrence: None)
  Receive Date: 20090107
  Receipt Date: 20080930
  Transmission Date: 20090719
  Serious: No
  Sender: FDA-Public Use
  Company Number: US-BRISTOL-MYERS SQUIBB COMPANY-14353940

PATIENT
  Sex: Female

DRUGS (1)
  1. TRAZODONE HCL [Suspect]

REACTIONS (1)
  - FEELING ABNORMAL [None]
